FAERS Safety Report 18448098 (Version 3)
Quarter: 2020Q4

REPORT INFORMATION
  Report Type: Report from Study
  Country: None (occurrence: CH)
  Receive Date: 20201031
  Receipt Date: 20201127
  Transmission Date: 20210114
  Serious: Yes (Hospitalization, Other)
  Sender: FDA-Public Use
  Company Number: CH-ABBVIE-20K-151-3629258-00

PATIENT
  Age: 73 Year
  Sex: Male

DRUGS (3)
  1. DUODOPA [Suspect]
     Active Substance: CARBIDOPA\LEVODOPA
     Dosage: MD: 8 ML, CRD: 2.7 ML/H, CRN: 0 ML/H, ED: 2 ML, 16 H THERAPY
     Route: 050
     Dates: start: 20200914
  2. DUODOPA [Suspect]
     Active Substance: CARBIDOPA\LEVODOPA
     Dosage: MD: 8 ML, CRD: 2.3 ML/H, CRN: 0 ML/H, ED: 1.5 ML, 16 H THERAPY
     Route: 050
     Dates: start: 20200303, end: 20200914
  3. DUODOPA [Suspect]
     Active Substance: CARBIDOPA\LEVODOPA
     Indication: PARKINSON^S DISEASE
     Route: 050
     Dates: start: 20120716, end: 20200303

REACTIONS (6)
  - Pneumonia aspiration [Recovered/Resolved]
  - General physical health deterioration [Not Recovered/Not Resolved]
  - Suspected COVID-19 [Recovered/Resolved]
  - Dyspnoea [Unknown]
  - Pneumonia aspiration [Unknown]
  - Dysphagia [Unknown]

NARRATIVE: CASE EVENT DATE: 20201028
